FAERS Safety Report 8817011 (Version 1)
Quarter: 2012Q4

REPORT INFORMATION
  Report Type: Spontaneous
  Country: US (occurrence: None)
  Receive Date: 20121002
  Receipt Date: 20121002
  Transmission Date: 20130627
  Serious: No
  Sender: FDA-Public Use
  Company Number: None

PATIENT
  Sex: Male
  Weight: 16.06 kg

DRUGS (1)
  1. DEPAKOTE [Suspect]
     Indication: SEIZURES
     Dosage: one at lunch time orally if he is eating otherwise he will get 125mg syrup at lunch
     Route: 048

REACTIONS (3)
  - Product substitution issue [None]
  - Convulsion [None]
  - Condition aggravated [None]
